FAERS Safety Report 6344501-8 (Version None)
Quarter: 2009Q3

REPORT INFORMATION
  Report Type: 
  Country: None (occurrence: None)
  Receive Date: 20090908
  Receipt Date: 20090825
  Transmission Date: 20100115
  Serious: Yes (Other)
  Sender: FDA-Public Use
  Company Number: US-PFIZER INC-2009260180

PATIENT
  Sex: Female

DRUGS (1)
  1. CORTEF [Suspect]

REACTIONS (8)
  - BLOOD GLUCOSE INCREASED [None]
  - DIZZINESS [None]
  - IMPAIRED DRIVING ABILITY [None]
  - NAUSEA [None]
  - OSTEOPOROSIS [None]
  - VISION BLURRED [None]
  - VOMITING [None]
  - WEIGHT INCREASED [None]
